FAERS Safety Report 5217660-8 (Version None)
Quarter: 2006Q4

REPORT INFORMATION
  Report Type: 
  Country: None (occurrence: None)
  Receive Date: 20061130
  Receipt Date: 20060623
  Transmission Date: 20070319
  Serious: Yes (Other)
  Sender: FDA-Public Use
  Company Number: US200601000164

PATIENT
  Age: 62 Year
  Sex: Female
  Weight: 95.2 kg

DRUGS (20)
  1. ZYPREXA [Suspect]
     Indication: THINKING ABNORMAL
     Dosage: SEE IMAGE
     Route: 048
     Dates: end: 20050101
  2. ZYPREXA [Suspect]
     Indication: THINKING ABNORMAL
     Dosage: SEE IMAGE
     Route: 048
     Dates: start: 19981008
  3. AVAPRO [Concomitant]
  4. EFFEXOR [Concomitant]
  5. XENICAL [Concomitant]
  6. PREVACID [Concomitant]
  7. METOCLOPRAMIDE [Concomitant]
  8. DYNACIRC [Concomitant]
  9. PROTONIX [Concomitant]
  10. AEROBID [Concomitant]
  11. ALBUTEROL [Concomitant]
  12. IBUPROFEN [Concomitant]
  13. ALPRAZOLAM [Concomitant]
  14. PREMARIN [Concomitant]
  15. FAMOTIDINE [Concomitant]
  16. PENICILLIN-VK [Concomitant]
  17. PROCHLORPERAZINE MALEATE [Concomitant]
  18. AMBIEN [Concomitant]
  19. HYDROCODONE BITARTRATE + ACETAMINOPHEN [Concomitant]
  20. PROPULSID [Concomitant]

REACTIONS (2)
  - DIABETES MELLITUS NON-INSULIN-DEPENDENT [None]
  - WEIGHT INCREASED [None]
